FAERS Safety Report 6191346-8 (Version None)
Quarter: 2009Q2

REPORT INFORMATION
  Report Type: 
  Country: None (occurrence: None)
  Receive Date: 20090515
  Receipt Date: 20090508
  Transmission Date: 20091009
  Serious: Yes (Death, Hospitalization, Other)
  Sender: FDA-Public Use
  Company Number: US-BAYER-200920431NA

PATIENT
  Age: 24 Year
  Sex: Female

DRUGS (1)
  1. YASMIN [Suspect]
     Indication: HAIR GROWTH ABNORMAL
     Dosage: 1 TAB/DAY
     Route: 048
     Dates: start: 20040709, end: 20040723

REACTIONS (2)
  - ADRENAL CARCINOMA [None]
  - BLOOD POTASSIUM DECREASED [None]
